FAERS Safety Report 12275739 (Version 1)
Quarter: 2016Q2

REPORT INFORMATION
  Report Type: Spontaneous
  Country: GB (occurrence: GB)
  Receive Date: 20160418
  Receipt Date: 20160418
  Transmission Date: 20160815
  Serious: Yes (Death, Other)
  Sender: FDA-Public Use
  Company Number: GB-AUROBINDO-AUR-APL-2016-04570

PATIENT
  Age: 72 Year
  Sex: Female

DRUGS (6)
  1. PAROXETINE 20MG [Suspect]
     Active Substance: PAROXETINE
     Indication: ANTIDEPRESSANT THERAPY
     Dosage: 40 MG, ONCE A DAY
     Route: 048
     Dates: end: 20160320
  2. RAMIPRIL 10MG [Suspect]
     Active Substance: RAMIPRIL
     Indication: HYPERTENSION
     Dosage: 10 MG, ONCE A DAY
     Route: 048
     Dates: end: 20160320
  3. KWELLS [Suspect]
     Active Substance: SCOPOLAMINE HYDROBROMIDE
     Indication: PRODUCT USED FOR UNKNOWN INDICATION
     Dosage: 300 ?G, AS DIRECTED.
     Route: 048
     Dates: end: 20160320
  4. NUROFEN [Suspect]
     Active Substance: IBUPROFEN
     Indication: PRODUCT USED FOR UNKNOWN INDICATION
     Dosage: 9.6 G, UNK
     Route: 048
     Dates: end: 20160320
  5. RISPERIDONE 3MG [Suspect]
     Active Substance: RISPERIDONE
     Indication: SCHIZOPHRENIA
     Dosage: 3 MG, (1MG THE MORNING AND 2MG IN THE EVENING)
     Route: 048
     Dates: end: 20160320
  6. FUROSEMIDE. [Concomitant]
     Active Substance: FUROSEMIDE
     Indication: PRODUCT USED FOR UNKNOWN INDICATION
     Route: 065

REACTIONS (10)
  - Hyponatraemia [Unknown]
  - Blood lactic acid increased [Unknown]
  - Liver function test abnormal [Unknown]
  - Ventricular tachycardia [Fatal]
  - Cardiac output decreased [Not Recovered/Not Resolved]
  - Hyperkalaemia [Recovered/Resolved]
  - Tachyarrhythmia [Not Recovered/Not Resolved]
  - Renal failure [Unknown]
  - Urine output decreased [Unknown]
  - Overdose [Unknown]

NARRATIVE: CASE EVENT DATE: 20160321
